FAERS Safety Report 5450657-1 (Version None)
Quarter: 2007Q3

REPORT INFORMATION
  Report Type: 
  Country: None (occurrence: None)
  Receive Date: 20070910
  Receipt Date: 20070824
  Transmission Date: 20080115
  Serious: Yes (Hospitalization)
  Sender: FDA-Public Use
  Company Number: DSA_30314_2007

PATIENT
  Sex: Female
  Weight: 82.1011 kg

DRUGS (15)
  1. CARDIZEM [Suspect]
     Indication: ANGINA PECTORIS
     Dosage: (120 MG QD ORAL)
     Route: 048
     Dates: start: 19970201, end: 19990101
  2. CARDIZEM [Suspect]
     Indication: CORONARY ARTERY DISEASE
     Dosage: (120 MG QD ORAL)
     Route: 048
     Dates: start: 19970201, end: 19990101
  3. CARDIZEM [Suspect]
     Indication: HEART RATE INCREASED
     Dosage: (120 MG QD ORAL)
     Route: 048
     Dates: start: 19970201, end: 19990101
  4. CARDIZEM [Suspect]
     Indication: ANGINA PECTORIS
     Dosage: (180 MG QD ORAL)
     Route: 048
     Dates: start: 19990101, end: 20050401
  5. CARDIZEM [Suspect]
     Indication: CORONARY ARTERY DISEASE
     Dosage: (180 MG QD ORAL)
     Route: 048
     Dates: start: 19990101, end: 20050401
  6. CARDIZEM [Suspect]
     Indication: HEART RATE INCREASED
     Dosage: (180 MG QD ORAL)
     Route: 048
     Dates: start: 19990101, end: 20050401
  7. CARDIZEM [Suspect]
     Indication: ANGINA PECTORIS
     Dosage: (180 MG QD ORAL)
     Route: 048
     Dates: start: 20050101
  8. CARDIZEM [Suspect]
     Indication: CORONARY ARTERY DISEASE
     Dosage: (180 MG QD ORAL)
     Route: 048
     Dates: start: 20050101
  9. CARDIZEM [Suspect]
     Indication: HEART RATE INCREASED
     Dosage: (180 MG QD ORAL)
     Route: 048
     Dates: start: 20050101
  10. GLYBURIDE [Concomitant]
  11. METFORMIN HCL [Concomitant]
  12. LIPITOR [Concomitant]
  13. LASIX [Concomitant]
  14. ASPIRIN [Concomitant]
  15. THYROID TAB [Concomitant]

REACTIONS (9)
  - ANGINA PECTORIS [None]
  - DIABETES MELLITUS [None]
  - DYSPNOEA [None]
  - GENERALISED OEDEMA [None]
  - HEART RATE INCREASED [None]
  - NAUSEA [None]
  - OEDEMA PERIPHERAL [None]
  - PALPITATIONS [None]
  - SWELLING FACE [None]
